FAERS Safety Report 24061727 (Version 1)
Quarter: 2024Q3

REPORT INFORMATION
  Report Type: Spontaneous
  Country: KE (occurrence: KE)
  Receive Date: 20240708
  Receipt Date: 20240708
  Transmission Date: 20241016
  Serious: Yes (Other)
  Sender: PFIZER
  Company Number: KE-PFIZER INC-PV202400087900

PATIENT
  Age: 46 Year
  Sex: Male

DRUGS (1)
  1. BOSULIF [Suspect]
     Active Substance: BOSUTINIB MONOHYDRATE
     Indication: Chronic myeloid leukaemia
     Dosage: 300 MG

REACTIONS (1)
  - Diarrhoea haemorrhagic [Unknown]
